FAERS Safety Report 23897670 (Version 7)
Quarter: 2024Q3

REPORT INFORMATION
  Report Type: Spontaneous
  Country: JP (occurrence: JP)
  Receive Date: 20240524
  Receipt Date: 20240923
  Transmission Date: 20241017
  Serious: Yes (Life-Threatening, Hospitalization, Other)
  Sender: AMGEN
  Company Number: JP-ONO-2024JP010116

PATIENT
  Age: 75 Year
  Sex: Female
  Weight: 56.3 kg

DRUGS (6)
  1. KYPROLIS [Suspect]
     Active Substance: CARFILZOMIB
     Indication: Plasma cell myeloma
     Dosage: 31 MG, Q84H
     Route: 041
     Dates: start: 20240501, end: 20240502
  2. KYPROLIS [Suspect]
     Active Substance: CARFILZOMIB
     Dosage: 88 MILLIGRAM (88 MILLIGRAM, Q84H)
     Route: 042
     Dates: start: 20240508, end: 20240508
  3. DARATUMUMAB [Concomitant]
     Active Substance: DARATUMUMAB
     Indication: Plasma cell myeloma
     Dosage: 1800 MG
     Route: 058
     Dates: start: 20240501, end: 20240508
  4. DEXAMETHASONE SODIUM PHOSPHATE [Concomitant]
     Active Substance: DEXAMETHASONE PHOSPHATE\DEXAMETHASONE SODIUM PHOSPHATE
     Indication: Plasma cell myeloma
     Dosage: 19.8 MG
     Route: 042
     Dates: start: 20240501, end: 20240508
  5. CALONAL [Concomitant]
     Active Substance: ACETAMINOPHEN
     Indication: Prophylaxis
     Dosage: 1000 MG, EVERYDAY
     Route: 048
     Dates: start: 20240501, end: 20240508
  6. D CHLORPHENIRAMINE MALEATE TAKEDA TEVA [Concomitant]
     Indication: Prophylaxis
     Dosage: 2 MG, EVERYDAY
     Route: 048
     Dates: start: 20240501, end: 20240508

REACTIONS (6)
  - Myocarditis [Recovered/Resolved]
  - Atrial fibrillation [Unknown]
  - Fibrin D dimer increased [Unknown]
  - Sinus tachycardia [Unknown]
  - Palpitations [Unknown]
  - Dyspnoea exertional [Recovering/Resolving]

NARRATIVE: CASE EVENT DATE: 20240501
